FAERS Safety Report 5047569-4 (Version None)
Quarter: 2006Q3

REPORT INFORMATION
  Report Type: 
  Country: None (occurrence: None)
  Receive Date: 20060705
  Receipt Date: 20060705
  Transmission Date: 20061208
  Serious: Yes (Other)
  Sender: FDA-Public Use
  Company Number: None

PATIENT
  Age: 57 Year
  Sex: Female
  Weight: 89.3586 kg

DRUGS (8)
  1. ACTOS [Suspect]
     Indication: DIABETES MELLITUS
     Dosage: 15/500 TWICE DAILY ORALLY
     Route: 048
     Dates: start: 20060216, end: 20060315
  2. LABETALOL HCL [Concomitant]
  3. HYDROCHLOROTHIAZIDE [Concomitant]
  4. ASPIRIN [Concomitant]
  5. GLUCOTROL XL [Concomitant]
  6. ZOLOFT [Concomitant]
  7. LIPITOR [Concomitant]
  8. LOTREL [Concomitant]

REACTIONS (5)
  - ASTHENIA [None]
  - BEDRIDDEN [None]
  - MOVEMENT DISORDER [None]
  - MYALGIA [None]
  - MYOPATHY [None]
